FAERS Safety Report 7279045 (Version 4)
Quarter: 2012Q4

REPORT INFORMATION
  Report Type: 
  Country: US (occurrence: US)
  Receive Date: 20100216
  Receipt Date: 20120907
  Transmission Date: 20130627
  Serious: Yes (Hospitalization)
  Sender: FDA-Public Use
  Company Number: US-BIOGENIDEC-2010BI004559

PATIENT
  Age: 55 Year
  Sex: Female

DRUGS (3)
  1. AVONEX [Suspect]
     Indication: MULTIPLE SCLEROSIS
     Route: 030
     Dates: start: 19970214, end: 2003
  2. AVONEX [Suspect]
     Indication: MULTIPLE SCLEROSIS
     Route: 030
     Dates: start: 2003, end: 2011
  3. AVONEX [Suspect]
     Indication: MULTIPLE SCLEROSIS
     Route: 030
     Dates: start: 2011, end: 2011

REACTIONS (7)
  - Device related infection [Recovered/Resolved]
  - Staphylococcal infection [Recovered/Resolved]
  - Fall [Recovered/Resolved]
  - Thoracic vertebral fracture [Unknown]
  - Pneumonia [Recovered/Resolved]
  - Impaired healing [Recovered/Resolved]
  - Wound dehiscence [Recovered/Resolved]
